FAERS Safety Report 8027430-3 (Version None)
Quarter: 2012Q1

REPORT INFORMATION
  Report Type: 
  Country: None (occurrence: None)
  Receive Date: 20120105
  Receipt Date: 20120105
  Transmission Date: 20120608
  Serious: Yes (Hospitalization)
  Sender: FDA-Public Use
  Company Number: None

PATIENT
  Age: 76 Year
  Sex: Male
  Weight: 83.1 kg

DRUGS (2)
  1. PROPOFOL [Suspect]
     Indication: ANAESTHESIA
     Dosage: 140 MG ONCE IV
     Route: 042
     Dates: start: 20111117, end: 20111117
  2. MIDAZOLAM [Suspect]
     Indication: ANAESTHESIA
     Dosage: 2 MG ONCE IV
     Route: 042
     Dates: start: 20111117, end: 20111117

REACTIONS (2)
  - ELECTROCARDIOGRAM ABNORMAL [None]
  - BRADYCARDIA [None]
